FAERS Safety Report 7041888-8 (Version None)
Quarter: 2010Q4

REPORT INFORMATION
  Report Type: 
  Country: None (occurrence: None)
  Receive Date: 20101013
  Receipt Date: 20100728
  Transmission Date: 20110411
  Serious: No
  Sender: FDA-Public Use
  Company Number: US-ASTRAZENECA-2010SE14590

PATIENT
  Age: 75 Year
  Sex: Female

DRUGS (7)
  1. SYMBICORT [Suspect]
     Dosage: 160/4.5
     Route: 055
     Dates: start: 20100201
  2. NEXIUM [Concomitant]
  3. NORVASC [Concomitant]
  4. KLOR-CON [Concomitant]
  5. FOLIC ACID [Concomitant]
  6. CENESTIN [Concomitant]
  7. GLUCOSAMINE [Concomitant]

REACTIONS (5)
  - NERVOUSNESS [None]
  - ORAL CANDIDIASIS [None]
  - OROPHARYNGEAL PAIN [None]
  - PHARYNGEAL ULCERATION [None]
  - TACHYCARDIA [None]
